FAERS Safety Report 8322596-X (Version None)
Quarter: 2012Q2

REPORT INFORMATION
  Report Type: 
  Country: None (occurrence: None)
  Receive Date: 20120426
  Receipt Date: 20120402
  Transmission Date: 20120825
  Serious: Yes (Other)
  Sender: FDA-Public Use
  Company Number: 001184679A

PATIENT
  Age: 26 Year
  Sex: Female

DRUGS (5)
  1. TRAZODONE HCL [Concomitant]
  2. PROACTIV 90 DAY KIT [Suspect]
     Indication: ACNE
     Dosage: ONE DOSE,DERMAL
     Route: 061
  3. PROZAC [Concomitant]
  4. LORAZEPAM [Concomitant]
  5. AMBIEN [Concomitant]

REACTIONS (4)
  - URTICARIA [None]
  - RESPIRATORY TRACT OEDEMA [None]
  - SWELLING FACE [None]
  - PARAESTHESIA [None]
